FAERS Safety Report 5734580-0 (Version None)
Quarter: 2008Q2

REPORT INFORMATION
  Report Type: 
  Country: None (occurrence: None)
  Receive Date: 20080512
  Receipt Date: 20080503
  Transmission Date: 20081010
  Serious: Yes (Hospitalization)
  Sender: FDA-Public Use
  Company Number: US-WYE-H03901208

PATIENT
  Sex: Male
  Weight: 69.01 kg

DRUGS (4)
  1. TORISEL [Suspect]
     Indication: RENAL CELL CARCINOMA
     Route: 042
     Dates: start: 20080227
  2. DILAUDID [Concomitant]
  3. MEGACE [Concomitant]
  4. PROTONIX [Concomitant]

REACTIONS (1)
  - PANCREATITIS [None]
